FAERS Safety Report 6177911-2 (Version None)
Quarter: 2009Q2

REPORT INFORMATION
  Report Type: 
  Country: None (occurrence: None)
  Receive Date: 20090430
  Receipt Date: 20090415
  Transmission Date: 20091009
  Serious: Yes (Other)
  Sender: FDA-Public Use
  Company Number: 2009S1006779

PATIENT
  Age: 40 Year
  Sex: Male

DRUGS (2)
  1. VENLAFAXINE HCL [Suspect]
     Indication: DEPRESSION
     Dosage: 150 MG; ; ORAL
     Route: 048
     Dates: start: 20080820, end: 20081217
  2. FLUOXETINE HCL [Concomitant]

REACTIONS (3)
  - AGGRESSION [None]
  - ALCOHOL ABUSE [None]
  - ALCOHOLISM [None]
